FAERS Safety Report 25682989 (Version 1)
Quarter: 2025Q3

REPORT INFORMATION
  Report Type: Spontaneous
  Country: US (occurrence: US)
  Receive Date: 20250814
  Receipt Date: 20250814
  Transmission Date: 20251020
  Serious: No
  Sender: ELI LILLY AND COMPANY
  Company Number: US-ELI_LILLY_AND_COMPANY-US202508010278

PATIENT
  Age: 68 Year
  Sex: Female

DRUGS (1)
  1. ZEPBOUND [Suspect]
     Active Substance: TIRZEPATIDE
     Indication: Product used for unknown indication
     Route: 065
     Dates: start: 20250609

REACTIONS (6)
  - Sleep disorder due to general medical condition, insomnia type [Unknown]
  - Off label use [Unknown]
  - Abdominal pain upper [Unknown]
  - Abdominal discomfort [Unknown]
  - Vomiting [Unknown]
  - Nausea [Unknown]
